FAERS Safety Report 6936853-2 (Version None)
Quarter: 2010Q3

REPORT INFORMATION
  Report Type: 
  Country: None (occurrence: None)
  Receive Date: 20100818
  Receipt Date: 20100811
  Transmission Date: 20110219
  Serious: Yes (Death)
  Sender: FDA-Public Use
  Company Number: 2010US002599

PATIENT
  Age: 78 Year
  Sex: Male

DRUGS (5)
  1. AMBISOME [Suspect]
     Indication: MUCORMYCOSIS
  2. METFORMIN HCL [Concomitant]
  3. GLIMEPIRIDE [Concomitant]
  4. ASPIRIN [Concomitant]
  5. CANDESARTAN W/HYDROCHLOROTHIAZIDE (CANDESARTAN, HYDROCHLOROTHIAZIDE) [Concomitant]

REACTIONS (3)
  - BONE EROSION [None]
  - ISCHAEMIC CEREBRAL INFARCTION [None]
  - SINUS DISORDER [None]
